FAERS Safety Report 9264595 (Version 1)
Quarter: 2013Q2

REPORT INFORMATION
  Report Type: Spontaneous
  Country: US (occurrence: US)
  Receive Date: 20130501
  Receipt Date: 20130501
  Transmission Date: 20140414
  Serious: No
  Sender: FDA-Public Use
  Company Number: US-BIOGENIDEC-2013BI036705

PATIENT
  Sex: Female

DRUGS (8)
  1. AVONEX [Suspect]
     Indication: MULTIPLE SCLEROSIS
     Route: 030
  2. AVONEX [Suspect]
     Indication: MULTIPLE SCLEROSIS
     Route: 030
     Dates: start: 19960901, end: 20070830
  3. METAMUCIL [Concomitant]
     Indication: FAECAL INCONTINENCE
  4. METAMUCIL [Concomitant]
     Indication: DIARRHOEA
  5. MACROBID [Concomitant]
     Indication: NEUROGENIC BLADDER
  6. MACROBID [Concomitant]
     Indication: URINARY RETENTION
  7. MACROBID [Concomitant]
     Indication: URINARY RETENTION
  8. MACROBID [Concomitant]
     Indication: CYSTITIS

REACTIONS (1)
  - General symptom [Not Recovered/Not Resolved]
